FAERS Safety Report 5767609-4 (Version None)
Quarter: 2008Q2

REPORT INFORMATION
  Report Type: 
  Country: None (occurrence: None)
  Receive Date: 20080611
  Receipt Date: 20080611
  Transmission Date: 20081010
  Serious: Yes (Life-Threatening, Other)
  Sender: FDA-Public Use
  Company Number: None

PATIENT
  Age: 23 Year
  Sex: Female
  Weight: 117.9352 kg

DRUGS (2)
  1. SINGULAIR [Suspect]
     Indication: ASTHMA
     Dosage: 10 MG AT BEDTIME PO
     Route: 048
     Dates: start: 19980401, end: 20080610
  2. SINGULAIR [Suspect]
     Indication: MULTIPLE ALLERGIES
     Dosage: 10 MG AT BEDTIME PO
     Route: 048
     Dates: start: 19980401, end: 20080610

REACTIONS (8)
  - DEPRESSION [None]
  - INTENTIONAL SELF-INJURY [None]
  - IRRITABILITY [None]
  - MOOD SWINGS [None]
  - OVERDOSE [None]
  - SKIN LACERATION [None]
  - SUICIDAL IDEATION [None]
  - SUICIDE ATTEMPT [None]
